FAERS Safety Report 17984332 (Version 1)
Quarter: 2020Q3

REPORT INFORMATION
  Report Type: Spontaneous
  Country: US (occurrence: US)
  Receive Date: 20200706
  Receipt Date: 20200706
  Transmission Date: 20201103
  Serious: Yes (Other)
  Sender: FDA-Public Use
  Company Number: None

PATIENT
  Age: 60 Year
  Sex: Female
  Weight: 60.75 kg

DRUGS (1)
  1. SYMPROIC [Suspect]
     Active Substance: NALDEMEDINE
     Indication: CONSTIPATION
     Route: 048
     Dates: start: 20200610, end: 20200702

REACTIONS (6)
  - Diarrhoea [None]
  - Fear [None]
  - Proctalgia [None]
  - Gastrointestinal tract irritation [None]
  - Dysuria [None]
  - Constipation [None]

NARRATIVE: CASE EVENT DATE: 20200706
